FAERS Safety Report 9308317 (Version 1)
Quarter: 2013Q2

REPORT INFORMATION
  Report Type: Spontaneous
  Country: DE (occurrence: DE)
  Receive Date: 20130524
  Receipt Date: 20130524
  Transmission Date: 20140414
  Serious: Yes (Death, Life-Threatening, Hospitalization)
  Sender: FDA-Public Use
  Company Number: DE-TEVA-404695GER

PATIENT
  Sex: Female
  Weight: 95 kg

DRUGS (2)
  1. METRONIDAZOLE [Suspect]
     Indication: INTESTINAL ISCHAEMIA
     Route: 042
     Dates: start: 20130424, end: 20130430
  2. CEFUROXIM [Concomitant]
     Route: 042
     Dates: start: 20130424, end: 20130430

REACTIONS (2)
  - Toxic epidermal necrolysis [Fatal]
  - Cardiopulmonary failure [Fatal]
